FAERS Safety Report 11338443 (Version 1)
Quarter: 2015Q3

REPORT INFORMATION
  Report Type: Spontaneous
  Country: US (occurrence: US)
  Receive Date: 20150803
  Receipt Date: 20150803
  Transmission Date: 20151125
  Serious: No
  Sender: FDA-Public Use
  Company Number: US-ELI_LILLY_AND_COMPANY-US200708005744

PATIENT
  Age: 21 Year
  Sex: Male

DRUGS (5)
  1. STRATTERA [Suspect]
     Active Substance: ATOMOXETINE HYDROCHLORIDE
     Indication: ATTENTION DEFICIT/HYPERACTIVITY DISORDER
     Dosage: 40 MG, 2/D
     Dates: start: 200707
  2. LAMICTAL [Concomitant]
     Active Substance: LAMOTRIGINE
  3. STRATTERA [Suspect]
     Active Substance: ATOMOXETINE HYDROCHLORIDE
     Dosage: 80 MG, 2/D
  4. CYMBALTA [Concomitant]
     Active Substance: DULOXETINE HYDROCHLORIDE
  5. SEROQUEL /UNK/ [Concomitant]
     Indication: ANXIETY

REACTIONS (3)
  - Drug ineffective [Recovered/Resolved]
  - Accidental overdose [Not Recovered/Not Resolved]
  - Frustration [Recovered/Resolved]

NARRATIVE: CASE EVENT DATE: 200707
